FAERS Safety Report 5658967-X (Version None)
Quarter: 2008Q1

REPORT INFORMATION
  Report Type: 
  Country: None (occurrence: None)
  Receive Date: 20080310
  Receipt Date: 20070515
  Transmission Date: 20080703
  Serious: No
  Sender: FDA-Public Use
  Company Number: US-BAYER-200711541BCC

PATIENT
  Age: 80 Year
  Sex: Male
  Weight: 76 kg

DRUGS (8)
  1. ALEVE [Suspect]
     Indication: BACK PAIN
     Dosage: UNIT DOSE: 220 MG
     Route: 048
     Dates: start: 20070514
  2. VERAPAMIL [Concomitant]
  3. LISINOPRIL [Concomitant]
  4. FLAX SEED OIL [Concomitant]
  5. ONE A DAY PILLS [Concomitant]
  6. ZINC TABLETS [Concomitant]
  7. GARLIC TABLETS [Concomitant]
  8. APPLE CIDER VINEGAR [Concomitant]

REACTIONS (1)
  - BACK PAIN [None]
